FAERS Safety Report 7819430-0 (Version None)
Quarter: 2011Q4

REPORT INFORMATION
  Report Type: 
  Country: None (occurrence: None)
  Receive Date: 20111018
  Receipt Date: 20101105
  Transmission Date: 20120403
  Serious: No
  Sender: FDA-Public Use
  Company Number: US-ASTRAZENECA-2010SE52939

PATIENT
  Age: 73 Year
  Sex: Female
  Weight: 104.3 kg

DRUGS (1)
  1. SYMBICORT [Suspect]
     Indication: ASTHMA
     Dosage: 160 MCG TWO TIMES A DAY
     Route: 055
     Dates: start: 20100901

REACTIONS (4)
  - SINUSITIS [None]
  - DIARRHOEA [None]
  - INFLUENZA [None]
  - VOMITING [None]
